FAERS Safety Report 25540140 (Version 1)
Quarter: 2025Q3

REPORT INFORMATION
  Report Type: Spontaneous
  Country: US (occurrence: None)
  Receive Date: 20250710
  Receipt Date: 20250710
  Transmission Date: 20251021
  Serious: Yes (Disabling, Other)
  Sender: FDA-CTU
  Company Number: None

PATIENT
  Age: 54 Year
  Sex: Female
  Weight: 109.8 kg

DRUGS (15)
  1. CUVITRU [Suspect]
     Active Substance: HUMAN IMMUNOGLOBULIN G
     Indication: Immunodeficiency common variable
     Route: 058
     Dates: start: 20250616, end: 20250623
  2. ASPIRIN [Concomitant]
     Active Substance: ASPIRIN
  3. Bruprion [Concomitant]
  4. CLONAZEPAM [Concomitant]
     Active Substance: CLONAZEPAM
  5. PROMETHAZINE [Concomitant]
     Active Substance: PROMETHAZINE HYDROCHLORIDE
  6. HYDROCODONE [Concomitant]
     Active Substance: HYDROCODONE
  7. hydroxycloroquin [Concomitant]
  8. LEVOTHYROXINE [Concomitant]
     Active Substance: LEVOTHYROXINE
  9. METOPROLOL [Concomitant]
     Active Substance: METOPROLOL
  10. ROSUVASTATIN [Concomitant]
     Active Substance: ROSUVASTATIN
  11. sertriline [Concomitant]
  12. SUMATRIPTAN [Concomitant]
     Active Substance: SUMATRIPTAN
  13. TIZANIDINE [Concomitant]
     Active Substance: TIZANIDINE
  14. TOPIRAMATE [Concomitant]
     Active Substance: TOPIRAMATE
  15. TYLENOL [Concomitant]
     Active Substance: ACETAMINOPHEN

REACTIONS (8)
  - Hypothalamo-pituitary disorder [None]
  - Optic nerve disorder [None]
  - Intracranial venous sinus stenosis [None]
  - Neck pain [None]
  - Rhinalgia [None]
  - Musculoskeletal stiffness [None]
  - Ocular discomfort [None]
  - Balance disorder [None]

NARRATIVE: CASE EVENT DATE: 20250625
